FAERS Safety Report 9158133 (Version 1)
Quarter: 2013Q1

REPORT INFORMATION
  Report Type: Spontaneous
  Country: US (occurrence: None)
  Receive Date: 20130213
  Receipt Date: 20130213
  Transmission Date: 20140127
  Serious: Yes (Other)
  Sender: FDA-Public Use
  Company Number: JPI-P-029605

PATIENT
  Age: 44 Year
  Sex: Female
  Weight: 99.34 kg

DRUGS (5)
  1. XYREM (500 MILLIGRAM/MILLILITERS, SOLUTION) (SODIUM OXYBATE) [Suspect]
     Indication: CATAPLEXY
     Route: 048
     Dates: start: 201211
  2. ATENOLOL [Concomitant]
  3. SPIRONOLACTONE [Concomitant]
  4. ROPINIROLE HYDROCHLORIDE [Concomitant]
  5. ASPIRIN [Concomitant]

REACTIONS (5)
  - Arthritis [None]
  - Meniscus injury [None]
  - Arthropathy [None]
  - Knee arthroplasty [None]
  - Procedural pain [None]
